FAERS Safety Report 9644178 (Version 1)
Quarter: 2013Q4

REPORT INFORMATION
  Report Type: Spontaneous
  Country: FR (occurrence: FR)
  Receive Date: 20131024
  Receipt Date: 20131024
  Transmission Date: 20140711
  Serious: Yes (Other)
  Sender: FDA-Public Use
  Company Number: FR-PFIZER INC-2013299678

PATIENT
  Age: 58 Year
  Sex: Male
  Weight: 70.5 kg

DRUGS (4)
  1. BENEFIX [Suspect]
     Indication: FACTOR IX DEFICIENCY
     Dosage: 4000 IU, AS NEEDED
     Dates: start: 20061017, end: 20111010
  2. VOLTARENE [Concomitant]
     Dosage: UNK
  3. KETOPROFEN [Concomitant]
     Dosage: UNK
  4. TOPALGIC [Concomitant]
     Dosage: UNK

REACTIONS (4)
  - Haematuria [Unknown]
  - Calculus urinary [Unknown]
  - Intervertebral disc protrusion [Unknown]
  - Back pain [Unknown]
